FAERS Safety Report 9741753 (Version 2)
Quarter: 2013Q4

REPORT INFORMATION
  Report Type: Report from Study
  Country: FR (occurrence: FR)
  Receive Date: 20131210
  Receipt Date: 20131217
  Transmission Date: 20140711
  Serious: Yes (Other)
  Sender: FDA-Public Use
  Company Number: FR-ROCHE-1314271

PATIENT
  Age: 78 Year
  Sex: Female

DRUGS (7)
  1. ZELBORAF [Suspect]
     Indication: MALIGNANT MELANOMA
     Route: 048
  2. ARCOXIA [Concomitant]
  3. DICLOFENAC [Concomitant]
  4. NOOTROPYL [Concomitant]
  5. ZUMALGIC [Concomitant]
     Dosage: 50
     Route: 065
  6. CACIT D3 [Concomitant]
  7. INDIVINA [Concomitant]

REACTIONS (5)
  - Pain [Recovering/Resolving]
  - Osteoarthritis [Recovering/Resolving]
  - Visual acuity reduced [Not Recovered/Not Resolved]
  - Erythema [Recovering/Resolving]
  - Skin exfoliation [Recovering/Resolving]
